FAERS Safety Report 6367781-1 (Version None)
Quarter: 2009Q3

REPORT INFORMATION
  Report Type: 
  Country: None (occurrence: None)
  Receive Date: 20090921
  Receipt Date: 20090909
  Transmission Date: 20100115
  Serious: Yes (Other)
  Sender: FDA-Public Use
  Company Number: US-WYE-H10913809

PATIENT
  Sex: Female
  Weight: 88.53 kg

DRUGS (1)
  1. PRISTIQ [Suspect]
     Indication: DEPRESSION
     Route: 048
     Dates: start: 20090817

REACTIONS (8)
  - AGITATION [None]
  - ANGER [None]
  - DIZZINESS [None]
  - HOSTILITY [None]
  - HYPERHIDROSIS [None]
  - NAIL INJURY [None]
  - NAUSEA [None]
  - PARAESTHESIA [None]
